FAERS Safety Report 13988908 (Version 1)
Quarter: 2017Q3

REPORT INFORMATION
  Report Type: Other
  Country: GB (occurrence: KR)
  Receive Date: 20170919
  Receipt Date: 20170919
  Transmission Date: 20171128
  Serious: Yes (Hospitalization, Other)
  Sender: FDA-Public Use
  Company Number: KR-AMPHASTAR PHARMACEUTICALS, INC.-2026902

PATIENT
  Age: 34 Year
  Sex: Female

DRUGS (5)
  1. LIDOCAINE 1 % [Suspect]
     Active Substance: LIDOCAINE
  2. TRIAMCINOLONE ACETONIDE. [Suspect]
     Active Substance: TRIAMCINOLONE ACETONIDE
  3. SODIUM CHLORIDE 10% [Suspect]
     Active Substance: SODIUM CHLORIDE
  4. HYALURONIDASE 1500U [Suspect]
     Active Substance: HYALURONIDASE
  5. MIDAZOLAM [Concomitant]
     Active Substance: MIDAZOLAM HYDROCHLORIDE

REACTIONS (12)
  - Headache [None]
  - Nausea [None]
  - Pulmonary oedema [None]
  - Tachypnoea [None]
  - Electrocardiogram ST segment depression [None]
  - Tachycardia [None]
  - Drug administered at inappropriate site [Recovered/Resolved]
  - Stress cardiomyopathy [Recovered/Resolved]
  - Cold sweat [None]
  - Hypotension [None]
  - Respiratory failure [None]
  - Hypoxia [None]
